FAERS Safety Report 16709655 (Version 1)
Quarter: 2019Q4

REPORT INFORMATION
  Report Type: Spontaneous
  Country: US (occurrence: US)
  Receive Date: 20190815
  Receipt Date: 20190815
  Transmission Date: 20200122
  Serious: Yes (Other)
  Sender: FDA-Public Use
  Company Number: None

PATIENT
  Age: 29 Year
  Sex: Female
  Weight: 54.43 kg

DRUGS (5)
  1. MICROBID [Concomitant]
     Active Substance: SULFAMETHOXAZOLE\TRIMETHOPRIM
  2. PARAGARD T 380A [Suspect]
     Active Substance: COPPER
  3. FLAGYL [Concomitant]
     Active Substance: METRONIDAZOLE\METRONIDAZOLE HYDROCHLORIDE
  4. TRAMEDOL [Concomitant]
  5. YEAST INFECTION PILL [Concomitant]

REACTIONS (4)
  - Fungal infection [None]
  - Bacterial vaginosis [None]
  - Pain [None]
  - Urinary tract infection [None]

NARRATIVE: CASE EVENT DATE: 20190802
